FAERS Safety Report 21396687 (Version 1)
Quarter: 2022Q3

REPORT INFORMATION
  Report Type: Spontaneous
  Country: DE (occurrence: DE)
  Receive Date: 20220930
  Receipt Date: 20220930
  Transmission Date: 20221026
  Serious: Yes (Hospitalization)
  Sender: FDA-Public Use
  Company Number: DE-ANIPHARMA-2022-DE-000158

PATIENT
  Age: 59 Year
  Sex: Male

DRUGS (9)
  1. CANDESARTAN [Suspect]
     Active Substance: CANDESARTAN
     Indication: Product used for unknown indication
     Dosage: 16 MG, 1-0-1-0, TABLETS
     Route: 048
  2. TORSEMIDE [Suspect]
     Active Substance: TORSEMIDE
     Dosage: 100 MG, 1-0-0-0
     Route: 065
  3. SEVELAMER CARBONATE [Concomitant]
     Active Substance: SEVELAMER CARBONATE
     Dosage: 800 MG
     Route: 065
  4. METAMIZOL [Concomitant]
     Active Substance: METAMIZOLE SODIUM
     Dosage: 20GTT, IF NEEDED
     Route: 065
  5. CPS [Concomitant]
     Dosage: SUNDAY
     Route: 065
  6. BISOPROLOL [Suspect]
     Active Substance: BISOPROLOL
     Dosage: 5MG, 1-0-0-0, TABLETS
     Route: 048
  7. MOXONIDINE [Suspect]
     Active Substance: MOXONIDINE
     Dosage: 0.4 MG, 0-0-1-0, TABLET
     Route: 048
  8. MINOXIDIL [Suspect]
     Active Substance: MINOXIDIL
     Dosage: 10 MG, 1-1-0-1, TABLET
     Route: 048
  9. LEVITRA [Concomitant]
     Active Substance: VARDENAFIL HYDROCHLORIDE
     Dosage: 10 MG UNK
     Route: 065

REACTIONS (9)
  - Headache [Recovering/Resolving]
  - Hypertension [Recovering/Resolving]
  - Hypertensive crisis [Recovering/Resolving]
  - Product monitoring error [Recovering/Resolving]
  - Wrong technique in product usage process [Recovering/Resolving]
  - Medication error [Recovering/Resolving]
  - Product prescribing error [Recovering/Resolving]
  - Product administration error [Recovering/Resolving]
  - Product dispensing error [Recovering/Resolving]
